FAERS Safety Report 6105501-6 (Version None)
Quarter: 2009Q1

REPORT INFORMATION
  Report Type: 
  Country: None (occurrence: None)
  Receive Date: 20090306
  Receipt Date: 20090227
  Transmission Date: 20090719
  Serious: Yes (Hospitalization)
  Sender: FDA-Public Use
  Company Number: A0771652A

PATIENT
  Age: 58 Year
  Sex: Female
  Weight: 79.5 kg

DRUGS (12)
  1. AVANDIA [Suspect]
     Indication: DIABETES MELLITUS
     Dosage: 4MG TWICE PER DAY
     Route: 048
     Dates: start: 19990101, end: 20020101
  2. PREMARIN [Concomitant]
  3. GLUCOPHAGE [Concomitant]
  4. METFORMIN [Concomitant]
  5. INSULIN [Concomitant]
  6. GLYBURIDE [Concomitant]
  7. METOPROLOL TARTRATE [Concomitant]
  8. ZOLOFT [Concomitant]
  9. ZANTAC [Concomitant]
  10. LASIX [Concomitant]
  11. IRON [Concomitant]
  12. COLACE [Concomitant]

REACTIONS (1)
  - MYOCARDIAL INFARCTION [None]
